FAERS Safety Report 17592877 (Version 1)
Quarter: 2020Q1

REPORT INFORMATION
  Report Type: Spontaneous
  Country: LK (occurrence: LK)
  Receive Date: 20200327
  Receipt Date: 20200327
  Transmission Date: 20200409
  Serious: Yes (Life-Threatening, Other)
  Sender: FDA-Public Use
  Company Number: LK-ALLERGAN-2013317US

PATIENT
  Sex: Female

DRUGS (1)
  1. DAPSONE - BP [Suspect]
     Active Substance: DAPSONE
     Indication: BORDERLINE LEPROSY
     Dosage: UNK

REACTIONS (3)
  - Off label use [Unknown]
  - Sepsis [Recovered/Resolved]
  - Agranulocytosis [Recovered/Resolved]
